FAERS Safety Report 9227190 (Version 1)
Quarter: 2013Q1

REPORT INFORMATION
  Report Type: Spontaneous
  Country: US (occurrence: None)
  Receive Date: 20120914
  Receipt Date: 20120914
  Transmission Date: 20140127
  Serious: No
  Sender: FDA-Public Use
  Company Number: JPI-P-019670

PATIENT
  Age: 34 Year
  Sex: Female
  Weight: 96.62 kg

DRUGS (7)
  1. XYREM (500 MILLIGRAM/MILLILITERS, SOLUTION) (SODIUM OXYBATE) [Suspect]
     Indication: CATAPLEXY
     Dosage: 4.5GM (2.25GM, 2 IN 1D) ORAL
     Route: 048
     Dates: start: 20120201, end: 20120201
  2. LAMOTRIGINE [Concomitant]
  3. DULOXETINE HYDROCHLORIDE (TABLETS) [Concomitant]
  4. PROPRANOLOL [Concomitant]
  5. DOXYCYCLINE [Concomitant]
  6. AMLODIPIINE BESYLATE [Concomitant]
  7. LISINOPRIL [Concomitant]

REACTIONS (7)
  - Blood pressure increased [None]
  - Screaming [None]
  - Headache [None]
  - Initial insomnia [None]
  - Middle insomnia [None]
  - Hyperhidrosis [None]
  - Abnormal dreams [None]
